FAERS Safety Report 11757612 (Version 1)
Quarter: 2015Q4

REPORT INFORMATION
  Report Type: Spontaneous
  Country: CA (occurrence: CA)
  Receive Date: 20151120
  Receipt Date: 20151120
  Transmission Date: 20160304
  Serious: Yes (Other)
  Sender: FDA-Public Use
  Company Number: CA-HORIZON-VIM-0133-2015

PATIENT
  Age: 72 Year
  Sex: Female

DRUGS (21)
  1. FOSAVANCE [Concomitant]
     Active Substance: ALENDRONATE SODIUM\CHOLECALCIFEROL
     Dosage: 70/6600 IU
  2. CITRACAL + D [Concomitant]
     Active Substance: CALCIUM CITRATE\VITAMIN D
  3. ENBREL [Concomitant]
     Active Substance: ETANERCEPT
  4. TRAMCET [Concomitant]
     Active Substance: ACETAMINOPHEN\TRAMADOL
  5. SIMPONI [Concomitant]
     Active Substance: GOLIMUMAB
  6. ARTHROTEC [Concomitant]
     Active Substance: DICLOFENAC SODIUM\MISOPROSTOL
  7. RALIVIA [Concomitant]
     Active Substance: TRAMADOL HYDROCHLORIDE
  8. LYRICA [Concomitant]
     Active Substance: PREGABALIN
  9. PENNSAID [Concomitant]
     Active Substance: DICLOFENAC SODIUM
  10. CYMBALTA [Concomitant]
     Active Substance: DULOXETINE HYDROCHLORIDE
     Indication: TREMOR
  11. VIMOVO [Suspect]
     Active Substance: ESOMEPRAZOLE MAGNESIUM\NAPROXEN
     Indication: ABDOMINAL PAIN
     Route: 048
  12. PRAVASTATIN [Concomitant]
     Active Substance: PRAVASTATIN\PRAVASTATIN SODIUM
  13. CYCLOBENZAPRINE [Concomitant]
     Active Substance: CYCLOBENZAPRINE
  14. SULFASALIZINE [Concomitant]
     Indication: HEPATIC ENZYME INCREASED
  15. METHOTREXATE [Concomitant]
     Active Substance: METHOTREXATE
     Indication: LEUKOPENIA
  16. PREDNISONE. [Concomitant]
     Active Substance: PREDNISONE
  17. PREVACID [Concomitant]
     Active Substance: LANSOPRAZOLE
  18. CELEBREX [Concomitant]
     Active Substance: CELECOXIB
  19. ORENCIA [Concomitant]
     Active Substance: ABATACEPT
  20. LEFLUNOMIDE. [Concomitant]
     Active Substance: LEFLUNOMIDE
     Indication: HEPATIC ENZYME INCREASED
  21. MELOXICAM. [Concomitant]
     Active Substance: MELOXICAM

REACTIONS (6)
  - Fibromyalgia [Unknown]
  - Rheumatoid arthritis [Unknown]
  - Off label use [Unknown]
  - Leukopenia [Unknown]
  - Rotator cuff syndrome [Unknown]
  - Spinal osteoarthritis [Unknown]

NARRATIVE: CASE EVENT DATE: 2005
